FAERS Safety Report 7224481-3 (Version None)
Quarter: 2011Q1

REPORT INFORMATION
  Report Type: 
  Country: None (occurrence: None)
  Receive Date: 20110113
  Receipt Date: 20110109
  Transmission Date: 20110831
  Serious: No
  Sender: FDA-Public Use
  Company Number: US-PFIZER INC-2011005754

PATIENT
  Age: 75 Year
  Sex: Female

DRUGS (2)
  1. LIPITOR [Suspect]
     Dosage: 20 MG, DAILY
  2. LIPITOR [Suspect]
     Dosage: UNK, 3X/WEEK

REACTIONS (1)
  - PAIN IN EXTREMITY [None]
